FAERS Safety Report 17169996 (Version 1)
Quarter: 2019Q4

REPORT INFORMATION
  Report Type: Spontaneous
  Country: US (occurrence: US)
  Receive Date: 20191218
  Receipt Date: 20191218
  Transmission Date: 20200122
  Serious: No
  Sender: FDA-Public Use
  Company Number: US-PFIZER INC-2019538069

PATIENT
  Age: 90 Year
  Sex: Female
  Weight: 49.9 kg

DRUGS (1)
  1. ADVIL [Suspect]
     Active Substance: IBUPROFEN
     Indication: ARTHRITIS
     Dosage: 2 DF, DAILY

REACTIONS (4)
  - Product administration error [Unknown]
  - Weight decreased [Unknown]
  - Body height decreased [Unknown]
  - Therapeutic product effect incomplete [Unknown]
